FAERS Safety Report 8479218-7 (Version None)
Quarter: 2012Q2

REPORT INFORMATION
  Report Type: 
  Country: None (occurrence: None)
  Receive Date: 20120629
  Receipt Date: 20120626
  Transmission Date: 20120825
  Serious: Yes (Other)
  Sender: FDA-Public Use
  Company Number: FR-BAYER-2012-063332

PATIENT
  Age: 75 Year
  Sex: Male

DRUGS (3)
  1. STATIN [Concomitant]
  2. ANTIHYPERTENSIVES [Concomitant]
     Indication: HYPERTENSION
  3. ASPIRIN [Suspect]
     Indication: ISCHAEMIC CARDIOMYOPATHY
     Dosage: DAILY DOSE 100 MG

REACTIONS (5)
  - SUPERFICIAL SIDEROSIS OF CENTRAL NERVOUS SYSTEM [None]
  - MEMORY IMPAIRMENT [None]
  - ATAXIA [None]
  - DEMENTIA [None]
  - DEAFNESS [None]
